FAERS Safety Report 6742363-8 (Version None)
Quarter: 2010Q2

REPORT INFORMATION
  Report Type: 
  Country: None (occurrence: None)
  Receive Date: 20100526
  Receipt Date: 20100524
  Transmission Date: 20101027
  Serious: Yes (Other)
  Sender: FDA-Public Use
  Company Number: US-BRISTOL-MYERS SQUIBB COMPANY-15117799

PATIENT
  Age: 4 Year
  Sex: Female
  Weight: 33 kg

DRUGS (1)
  1. ABILIFY [Suspect]
     Indication: AUTISM SPECTRUM DISORDER
     Dosage: PREVIOUSLY TAKEN 2 MG
     Route: 048

REACTIONS (2)
  - EYE ROLLING [None]
  - HALLUCINATION [None]
